FAERS Safety Report 8080274-9 (Version None)
Quarter: 2012Q1

REPORT INFORMATION
  Report Type: 
  Country: None (occurrence: None)
  Receive Date: 20120130
  Receipt Date: 20120123
  Transmission Date: 20120608
  Serious: Yes (Disabling)
  Sender: FDA-Public Use
  Company Number: US-JNJFOC-20120109934

PATIENT
  Sex: Female

DRUGS (2)
  1. MELLARIL [Suspect]
     Indication: DEPRESSION
     Dosage: STOP DATE 1992-1993
     Route: 065
     Dates: start: 19840101
  2. HALDOL [Suspect]
     Indication: DEPRESSION
     Route: 065

REACTIONS (2)
  - TORTICOLLIS [None]
  - TENDONITIS [None]
